FAERS Safety Report 16233274 (Version 2)
Quarter: 2019Q2

REPORT INFORMATION
  Report Type: Spontaneous
  Country: JP (occurrence: JP)
  Receive Date: 20190424
  Receipt Date: 20190614
  Transmission Date: 20190711
  Serious: Yes (Hospitalization)
  Sender: FDA-Public Use
  Company Number: JP-ROCHE-2307629

PATIENT
  Age: 31 Year
  Sex: Female

DRUGS (1)
  1. XOFLUZA [Suspect]
     Active Substance: BALOXAVIR MARBOXIL
     Indication: INFLUENZA
     Route: 048

REACTIONS (1)
  - Ileus paralytic [Recovered/Resolved with Sequelae]

NARRATIVE: CASE EVENT DATE: 20190126
